FAERS Safety Report 6236158-1 (Version None)
Quarter: 2009Q2

REPORT INFORMATION
  Report Type: 
  Country: None (occurrence: None)
  Receive Date: 20090617
  Receipt Date: 20080725
  Transmission Date: 20091009
  Serious: Yes (Other)
  Sender: FDA-Public Use
  Company Number: WWISSUE-205

PATIENT
  Sex: Female

DRUGS (1)
  1. CIPROFLOXACIN TABLETS/UNKNOWN POTENCY/WEST-WARD [Suspect]
     Dates: start: 19960101, end: 20080101

REACTIONS (1)
  - TENDON RUPTURE [None]
